FAERS Safety Report 10890063 (Version 1)
Quarter: 2015Q1

REPORT INFORMATION
  Report Type: Report from Study
  Country: US (occurrence: US)
  Receive Date: 20150305
  Receipt Date: 20150305
  Transmission Date: 20150721
  Serious: Yes (Hospitalization, Other)
  Sender: FDA-Public Use
  Company Number: US-ROCHE-1545682

PATIENT
  Age: 62 Year
  Sex: Female
  Weight: 90.9 kg

DRUGS (5)
  1. BEVACIZUMAB [Suspect]
     Active Substance: BEVACIZUMAB
     Indication: OVARIAN CANCER
     Dosage: LAST DOSE WAS ADMINISTERED ON 16/JAN/2015
     Route: 042
     Dates: start: 20140509
  2. VELIPARIB [Suspect]
     Active Substance: VELIPARIB
     Indication: OVARIAN CANCER
     Dosage: LAST DOSE WAS ADMINISTERED ON 19/AUG/2014, DOSING COMPLETED AT CYCLE 6
     Route: 048
     Dates: start: 20140416, end: 20140819
  3. CARBOPLATIN. [Suspect]
     Active Substance: CARBOPLATIN
     Indication: OVARIAN CANCER
     Dosage: LAST DOSE WAS ADMINISTERED ON 15/AUG/2014, DOSING COMPLETED AT CYCLE 6
     Route: 042
     Dates: start: 20140418, end: 20140815
  4. LOVENOX [Concomitant]
     Active Substance: ENOXAPARIN SODIUM
  5. PACLITAXEL. [Suspect]
     Active Substance: PACLITAXEL
     Indication: OVARIAN CANCER
     Dosage: LAST DOSE WAS ADMINISTERED ON 15/AUG/2014, DOSING COMPLETED AT CYCLE 6
     Route: 042
     Dates: start: 20140418, end: 20140815

REACTIONS (6)
  - Decreased appetite [Recovered/Resolved]
  - Abdominal pain [Recovered/Resolved]
  - Intra-abdominal haemorrhage [Unknown]
  - Anaemia [Recovered/Resolved]
  - Hyponatraemia [Recovered/Resolved]
  - Acute kidney injury [Recovered/Resolved]

NARRATIVE: CASE EVENT DATE: 20150125
